FAERS Safety Report 8297100-5 (Version None)
Quarter: 2012Q2

REPORT INFORMATION
  Report Type: 
  Country: None (occurrence: None)
  Receive Date: 20120416
  Receipt Date: 20120404
  Transmission Date: 20120825
  Serious: Yes (Hospitalization)
  Sender: FDA-Public Use
  Company Number: DSA_55079_2012

PATIENT
  Sex: Male

DRUGS (5)
  1. COUMADIN [Concomitant]
  2. XENAZINE [Suspect]
     Indication: HUNTINGTON'S DISEASE
     Dosage: 12.5 MG TID ORAL, 25 MG BID, DOSE INCREASED ORAL, DF ORAL, 12.5 MG BID ORAL
     Route: 048
     Dates: start: 20120208
  3. XENAZINE [Suspect]
     Indication: HUNTINGTON'S DISEASE
     Dosage: 12.5 MG TID ORAL, 25 MG BID, DOSE INCREASED ORAL, DF ORAL, 12.5 MG BID ORAL
     Route: 048
     Dates: start: 20120101
  4. XENAZINE [Suspect]
     Indication: HUNTINGTON'S DISEASE
     Dosage: 12.5 MG TID ORAL, 25 MG BID, DOSE INCREASED ORAL, DF ORAL, 12.5 MG BID ORAL
     Route: 048
     Dates: start: 20120117, end: 20120207
  5. LOVENOX [Concomitant]

REACTIONS (5)
  - RESTLESSNESS [None]
  - CONFUSIONAL STATE [None]
  - SOMNOLENCE [None]
  - ANXIETY [None]
  - THROMBOSIS [None]
